FAERS Safety Report 10588339 (Version 1)
Quarter: 2014Q4

REPORT INFORMATION
  Report Type: Spontaneous
  Country: IT (occurrence: IT)
  Receive Date: 20141117
  Receipt Date: 20141117
  Transmission Date: 20150529
  Serious: Yes (Hospitalization)
  Sender: FDA-Public Use
  Company Number: IT-BAYER-2014-170205

PATIENT
  Age: 68 Year
  Sex: Male

DRUGS (5)
  1. AVODART [Concomitant]
     Active Substance: DUTASTERIDE
  2. LOSAPREX [Concomitant]
     Active Substance: LOSARTAN POTASSIUM
  3. SELEPARINA [Suspect]
     Active Substance: NADROPARIN CALCIUM
     Indication: THROMBOSIS PROPHYLAXIS
     Dosage: UNK
     Dates: start: 20141010, end: 20141017
  4. CARDIOASPIRIN [Suspect]
     Active Substance: ASPIRIN
     Indication: HYPERTENSION
     Dosage: 100 MG, DAILY DOSE
     Route: 048
     Dates: start: 20140101, end: 20141017
  5. TAVOR [OXYBUTYNIN HYDROCHLORIDE] [Concomitant]

REACTIONS (2)
  - Syncope [Recovering/Resolving]
  - Cerebral ischaemia [Recovering/Resolving]

NARRATIVE: CASE EVENT DATE: 20141017
